FAERS Safety Report 6559864-8 (Version None)
Quarter: 2010Q1

REPORT INFORMATION
  Report Type: 
  Country: None (occurrence: None)
  Receive Date: 20100129
  Receipt Date: 20090915
  Transmission Date: 20100710
  Serious: No
  Sender: FDA-Public Use
  Company Number: US-ABBOTT-09P-163-0597383-00

PATIENT
  Sex: Male
  Weight: 93.07 kg

DRUGS (8)
  1. HUMIRA [Suspect]
     Indication: COLITIS ULCERATIVE
     Dosage: DAY 1
     Dates: start: 20090901
  2. HUMIRA [Suspect]
     Indication: FIBROMYALGIA
  3. ULTRAM [Concomitant]
     Indication: DRUG USE FOR UNKNOWN INDICATION
  4. PRILOSEC [Concomitant]
     Indication: DRUG USE FOR UNKNOWN INDICATION
  5. FLEXERIL [Concomitant]
     Indication: DRUG USE FOR UNKNOWN INDICATION
  6. LOTREL [Concomitant]
     Indication: DRUG USE FOR UNKNOWN INDICATION
  7. AMBIEN [Concomitant]
     Indication: DRUG USE FOR UNKNOWN INDICATION
  8. COLAZAL [Concomitant]
     Indication: DRUG USE FOR UNKNOWN INDICATION

REACTIONS (1)
  - INJECTION SITE PAIN [None]
